FAERS Safety Report 21041678 (Version 2)
Quarter: 2022Q3

REPORT INFORMATION
  Report Type: Other
  Country: US (occurrence: None)
  Receive Date: 20220705
  Receipt Date: 20220807
  Transmission Date: 20221026
  Serious: Yes (Hospitalization, Other)
  Sender: FDA-Public Use
  Company Number: US-ROCHE-3127657

PATIENT
  Age: 49 Year
  Sex: Female
  Weight: 118.04 kg

DRUGS (5)
  1. OCREVUS [Suspect]
     Active Substance: OCRELIZUMAB
     Indication: Primary progressive multiple sclerosis
     Dosage: 300 MG ON DAY 1 AND DAY 15 ?STARTED IN SUMMER OF 2019 ;ONGOING: UNKNOWN
     Route: 042
     Dates: start: 2019
  2. TECFIDERA [Concomitant]
     Active Substance: DIMETHYL FUMARATE
  3. METHOTREXATE [Concomitant]
     Active Substance: METHOTREXATE
  4. REBIF [Concomitant]
     Active Substance: INTERFERON BETA-1A
  5. COPAXONE [Concomitant]
     Active Substance: GLATIRAMER ACETATE

REACTIONS (4)
  - Urinary tract infection [Not Recovered/Not Resolved]
  - COVID-19 [Recovered/Resolved]
  - Urinary retention [Not Recovered/Not Resolved]
  - Cystitis [Not Recovered/Not Resolved]

NARRATIVE: CASE EVENT DATE: 20220201
